FAERS Safety Report 25608971 (Version 1)
Quarter: 2025Q3

REPORT INFORMATION
  Report Type: Spontaneous
  Country: US (occurrence: US)
  Receive Date: 20250726
  Receipt Date: 20250726
  Transmission Date: 20251020
  Serious: Yes (Other)
  Sender: AMGEN
  Company Number: US-AMGEN-USASP2025145038

PATIENT
  Age: 72 Year
  Sex: Male

DRUGS (5)
  1. BEVACIZUMAB [Suspect]
     Active Substance: BEVACIZUMAB
     Indication: Mesothelioma malignant
     Route: 065
  2. CISPLATIN [Concomitant]
     Active Substance: CISPLATIN
     Indication: Mesothelioma malignant
     Route: 065
     Dates: start: 2020
  3. PEMETREXED [Concomitant]
     Active Substance: PEMETREXED
     Indication: Mesothelioma malignant
     Route: 065
     Dates: start: 2020
  4. NIVOLUMAB [Concomitant]
     Active Substance: NIVOLUMAB
     Indication: Mesothelioma malignant
     Route: 065
     Dates: start: 202408
  5. NELVUTAMIG [Concomitant]
     Active Substance: NELVUTAMIG
     Indication: Mesothelioma malignant
     Route: 065

REACTIONS (4)
  - Mesothelioma malignant recurrent [Unknown]
  - Respiratory disorder [Unknown]
  - Cardiac disorder [Unknown]
  - Off label use [Unknown]
